FAERS Safety Report 7010964-8 (Version None)
Quarter: 2010Q3

REPORT INFORMATION
  Report Type: 
  Country: None (occurrence: None)
  Receive Date: 20100923
  Receipt Date: 20081030
  Transmission Date: 20110219
  Serious: No
  Sender: FDA-Public Use
  Company Number: US-WYE-H04230808

PATIENT
  Sex: Female
  Weight: 104.42 kg

DRUGS (5)
  1. PREMARIN [Suspect]
     Indication: HORMONE REPLACEMENT THERAPY
     Dosage: 0.5 GM FOR SEVEN DAYS
     Route: 067
     Dates: start: 20080501, end: 20080501
  2. LESCOL [Concomitant]
     Indication: BLOOD CHOLESTEROL
     Route: 048
  3. TOFRANIL [Concomitant]
     Indication: DEPRESSION
     Route: 048
  4. PREVACID [Concomitant]
     Indication: GASTROOESOPHAGEAL REFLUX DISEASE
     Route: 048
  5. INDERAL [Concomitant]
     Indication: MIGRAINE
     Route: 048

REACTIONS (5)
  - ERYTHEMA [None]
  - FLUSHING [None]
  - OEDEMA PERIPHERAL [None]
  - RASH ERYTHEMATOUS [None]
  - RASH PRURITIC [None]
